FAERS Safety Report 6063409-9 (Version None)
Quarter: 2009Q1

REPORT INFORMATION
  Report Type: 
  Country: None (occurrence: None)
  Receive Date: 20090203
  Receipt Date: 20090126
  Transmission Date: 20090719
  Serious: Yes (Hospitalization)
  Sender: FDA-Public Use
  Company Number: SE-AMGEN-US262869

PATIENT
  Sex: Male

DRUGS (2)
  1. ENBREL [Suspect]
     Indication: PSORIATIC ARTHROPATHY
     Dosage: UNKNOWN
     Route: 065
     Dates: start: 19990525
  2. UNSPECIFIED STEROIDS [Concomitant]
     Route: 050

REACTIONS (2)
  - ARTHRITIS BACTERIAL [None]
  - TENOSYNOVITIS [None]
